FAERS Safety Report 4873173-4 (Version None)
Quarter: 2006Q1

REPORT INFORMATION
  Report Type: 
  Country: None (occurrence: None)
  Receive Date: 20060104
  Receipt Date: 20060104
  Transmission Date: 20060701
  Serious: Yes (Hospitalization)
  Sender: FDA-Public Use
  Company Number: None

PATIENT
  Age: 58 Year
  Sex: Female
  Weight: 53.2 kg

DRUGS (20)
  1. PERCOCET-5 [Suspect]
     Indication: PAIN
     Dosage: ONE TABLET   Q4 HOURS PRN  PO
     Route: 048
     Dates: start: 20051224, end: 20060103
  2. DEMEROL [Suspect]
     Indication: PAIN
     Dosage: 37.5 MG   Q4 HOURS PRN   IV BOLUS
     Route: 040
     Dates: start: 20051220, end: 20060103
  3. TPN [Concomitant]
  4. PROTONIX [Concomitant]
  5. PROMOD [Concomitant]
  6. BACID [Concomitant]
  7. CEFEPIME [Concomitant]
  8. LEVAQUIN [Concomitant]
  9. DIFLUCAN [Concomitant]
  10. ALBUMIN (HUMAN) [Concomitant]
  11. ARANESP [Concomitant]
  12. DOPAMINE [Concomitant]
  13. PHENERGAN [Concomitant]
  14. HECTOROL [Concomitant]
  15. OXACILLIN [Concomitant]
  16. CARNITOR [Concomitant]
  17. NYSTATIN [Concomitant]
  18. TYLENOL [Concomitant]
  19. LORTAB [Concomitant]
  20. LOMOTIL [Concomitant]

REACTIONS (2)
  - CONFUSIONAL STATE [None]
  - DISORIENTATION [None]
